FAERS Safety Report 21326639 (Version 1)
Quarter: 2022Q3

REPORT INFORMATION
  Report Type: Spontaneous
  Country: US (occurrence: US)
  Receive Date: 20220913
  Receipt Date: 20220913
  Transmission Date: 20221027
  Serious: Yes (Other)
  Sender: FDA-Public Use
  Company Number: US-SA-SAC20220912000431

PATIENT
  Sex: Male
  Weight: 63 kg

DRUGS (14)
  1. DUPIXENT [Suspect]
     Active Substance: DUPILUMAB
     Indication: Dermatitis atopic
     Dosage: 300 MG, QOW
     Route: 058
     Dates: start: 20220726
  2. SEROQUEL [Concomitant]
     Active Substance: QUETIAPINE FUMARATE
  3. TOPIRAMATE [Concomitant]
     Active Substance: TOPIRAMATE
  4. POTASSIUM CHLORIDE [Concomitant]
     Active Substance: POTASSIUM CHLORIDE
  5. BENADRYL [Concomitant]
     Active Substance: DIPHENHYDRAMINE HYDROCHLORIDE
  6. TIZANIDINE [Concomitant]
     Active Substance: TIZANIDINE
  7. CARAFATE [Concomitant]
     Active Substance: SUCRALFATE
  8. LASIX [Concomitant]
     Active Substance: FUROSEMIDE
  9. PANTOPRAZOLE SODIUM [Concomitant]
     Active Substance: PANTOPRAZOLE SODIUM
  10. MIRAPEX [Concomitant]
     Active Substance: PRAMIPEXOLE DIHYDROCHLORIDE
  11. CYMBALTA [Concomitant]
     Active Substance: DULOXETINE HYDROCHLORIDE
  12. LOSARTAN POTASSIUM [Concomitant]
     Active Substance: LOSARTAN POTASSIUM
  13. CANNABIS SATIVA SUBSP. INDICA TOP [Concomitant]
     Active Substance: CANNABIS SATIVA SUBSP. INDICA TOP
  14. MAGNESIUM [MAGNESIUM HYDROXIDE] [Concomitant]

REACTIONS (2)
  - Quadriplegia [Unknown]
  - Impaired healing [Unknown]
